FAERS Safety Report 6181691-4 (Version None)
Quarter: 2009Q2

REPORT INFORMATION
  Report Type: 
  Country: None (occurrence: None)
  Receive Date: 20090506
  Receipt Date: 20090428
  Transmission Date: 20091009
  Serious: Yes (Hospitalization)
  Sender: FDA-Public Use
  Company Number: FR-JNJFOC-20061105294

PATIENT
  Sex: Female
  Weight: 110 kg

DRUGS (6)
  1. EPITOMAX [Suspect]
     Route: 048
  2. EPITOMAX [Suspect]
     Indication: OBESITY
     Route: 048
  3. TERALITHE [Suspect]
     Route: 065
  4. TERALITHE [Suspect]
     Indication: BIPOLAR I DISORDER
     Route: 065
  5. EFFEXOR [Suspect]
     Route: 065
  6. EFFEXOR [Suspect]
     Indication: BIPOLAR I DISORDER
     Route: 065

REACTIONS (3)
  - DRUG EXPOSURE DURING PREGNANCY [None]
  - GESTATIONAL DIABETES [None]
  - HEART RATE ABNORMAL [None]
